FAERS Safety Report 7065083-1 (Version None)
Quarter: 2010Q4

REPORT INFORMATION
  Report Type: 
  Country: None (occurrence: None)
  Receive Date: 20101027
  Receipt Date: 19900409
  Transmission Date: 20110411
  Serious: Yes (Death)
  Sender: FDA-Public Use
  Company Number: US-ROCHE-900200410001

PATIENT
  Age: 28 Year
  Sex: Male

DRUGS (5)
  1. FANSIDAR [Suspect]
     Route: 048
     Dates: start: 19900315, end: 19900315
  2. CLEOCIN [Concomitant]
     Route: 065
  3. ACYCLOVIR SODIUM [Concomitant]
     Route: 065
  4. PYRIMETHAMINE [Concomitant]
     Route: 065
  5. AZT [Concomitant]
     Route: 065

REACTIONS (2)
  - RASH ERYTHEMATOUS [None]
  - TOXOPLASMOSIS [None]
